FAERS Safety Report 9456429 (Version 1)
Quarter: 2013Q3

REPORT INFORMATION
  Report Type: Spontaneous
  Country: US (occurrence: US)
  Receive Date: 20130813
  Receipt Date: 20130813
  Transmission Date: 20140515
  Serious: No
  Sender: FDA-Public Use
  Company Number: US-BAYER-2013-097790

PATIENT
  Age: 73 Year
  Sex: Female

DRUGS (2)
  1. GADAVIST [Suspect]
     Indication: SCAN WITH CONTRAST
     Dosage: 8CC
     Route: 042
     Dates: start: 20130802, end: 20130802
  2. GADAVIST [Suspect]
     Indication: SURGERY

REACTIONS (3)
  - Pruritus [None]
  - Burning sensation [None]
  - Urticaria [None]
